FAERS Safety Report 6573349-4 (Version None)
Quarter: 2010Q1

REPORT INFORMATION
  Report Type: 
  Country: None (occurrence: None)
  Receive Date: 20100208
  Receipt Date: 20100128
  Transmission Date: 20100710
  Serious: Yes (Hospitalization)
  Sender: FDA-Public Use
  Company Number: SE-BAXTER-2010BH001018

PATIENT
  Sex: Male

DRUGS (2)
  1. GAMMAGARD LIQUID [Suspect]
     Indication: IDIOPATHIC THROMBOCYTOPENIC PURPURA
     Route: 042
     Dates: start: 20091207, end: 20091207
  2. GAMMAGARD LIQUID [Suspect]
     Route: 042
     Dates: start: 20091214, end: 20091214

REACTIONS (3)
  - APHASIA [None]
  - ASTHENIA [None]
  - TRANSIENT ISCHAEMIC ATTACK [None]
